FAERS Safety Report 25434245 (Version 1)
Quarter: 2025Q2

REPORT INFORMATION
  Report Type: Spontaneous
  Country: JP (occurrence: JP)
  Receive Date: 20250613
  Receipt Date: 20250613
  Transmission Date: 20250716
  Serious: Yes (Death)
  Sender: GILEAD
  Company Number: JP-GILEAD-2025-0715744

PATIENT
  Age: 85 Year
  Sex: Male

DRUGS (11)
  1. VEKLURY [Suspect]
     Active Substance: REMDESIVIR
     Indication: COVID-19
     Route: 041
     Dates: start: 20250603, end: 20250603
  2. AMITIZA [Concomitant]
     Active Substance: LUBIPROSTONE
     Route: 048
  3. TAMSULOSIN HYDROCHLORIDE [Concomitant]
     Active Substance: TAMSULOSIN HYDROCHLORIDE
     Route: 048
  4. POTASSIUM GLUCONATE [Concomitant]
     Active Substance: POTASSIUM GLUCONATE
     Route: 048
  5. ALFACALCIDOL [Concomitant]
     Active Substance: ALFACALCIDOL
     Route: 048
  6. LEVOTHYROXINE SODIUM [Concomitant]
     Active Substance: LEVOTHYROXINE SODIUM
     Route: 048
  7. ALENDRONATE [Concomitant]
     Active Substance: ALENDRONATE SODIUM
     Route: 048
  8. SULPIRIDE [Concomitant]
     Active Substance: SULPIRIDE
     Route: 048
  9. SOLITA [Concomitant]
     Indication: Fluid replacement
  10. SOLITA [Concomitant]
     Indication: Nutritional supplementation
  11. DEXTROSE [Concomitant]
     Active Substance: DEXTROSE MONOHYDRATE
     Indication: Nutritional supplementation

REACTIONS (2)
  - COVID-19 [Fatal]
  - Poor venous access [Unknown]

NARRATIVE: CASE EVENT DATE: 20250604
